FAERS Safety Report 8385934-8 (Version None)
Quarter: 2012Q2

REPORT INFORMATION
  Report Type: 
  Country: None (occurrence: None)
  Receive Date: 20120525
  Receipt Date: 20120518
  Transmission Date: 20120825
  Serious: Yes (Hospitalization)
  Sender: FDA-Public Use
  Company Number: BE-JNJFOC-20120516528

PATIENT
  Sex: Male
  Weight: 65 kg

DRUGS (2)
  1. GOLIMUMAB [Suspect]
     Indication: JUVENILE ARTHRITIS
     Route: 058
     Dates: start: 20120320
  2. GOLIMUMAB [Suspect]
     Route: 058
     Dates: start: 20120418

REACTIONS (1)
  - APPENDICITIS [None]
